FAERS Safety Report 4560395-5 (Version None)
Quarter: 2005Q1

REPORT INFORMATION
  Report Type: 
  Country: None (occurrence: None)
  Receive Date: 20050125
  Receipt Date: 20050114
  Transmission Date: 20050727
  Serious: Yes (Hospitalization)
  Sender: FDA-Public Use
  Company Number: US-ROCHE-392707

PATIENT
  Age: 55 Year
  Sex: Male
  Weight: 91.6 kg

DRUGS (2)
  1. PEG-INTERFERON ALFA 2A (RO 25-8310) [Suspect]
     Route: 058
  2. RIBAVIRIN [Suspect]
     Route: 048

REACTIONS (1)
  - RENAL FAILURE ACUTE [None]
